FAERS Safety Report 4882230-8 (Version None)
Quarter: 2006Q1

REPORT INFORMATION
  Report Type: 
  Country: None (occurrence: None)
  Receive Date: 20060113
  Receipt Date: 20060113
  Transmission Date: 20060701
  Serious: No
  Sender: FDA-Public Use
  Company Number: None

PATIENT
  Sex: Female
  Weight: 75.2971 kg

DRUGS (2)
  1. METFORMIN [Suspect]
     Indication: DIABETES MELLITUS
     Dosage: 2 PO BID
     Route: 048
     Dates: start: 20020501, end: 20020514
  2. METFORMIN [Suspect]
     Indication: DIABETES MELLITUS
     Dosage: 2 PO BID
     Route: 048
     Dates: start: 20050901

REACTIONS (6)
  - ABDOMINAL PAIN [None]
  - DIABETES MELLITUS INADEQUATE CONTROL [None]
  - DIARRHOEA [None]
  - DRUG INEFFECTIVE [None]
  - INCONTINENCE [None]
  - THERAPEUTIC RESPONSE UNEXPECTED WITH DRUG SUBSTITUTION [None]
